FAERS Safety Report 4620108-5 (Version None)
Quarter: 2005Q1

REPORT INFORMATION
  Report Type: 
  Country: None (occurrence: None)
  Receive Date: 20050323
  Receipt Date: 20050323
  Transmission Date: 20050727
  Serious: Yes (Death, Other)
  Sender: FDA-Public Use
  Company Number: None

PATIENT
  Sex: Male
  Weight: 67.3 kg

DRUGS (3)
  1. CAPECITABINE [Suspect]
     Dosage: 825 MG/M2Q12 HOURS ORALLY DAILY
     Route: 048
     Dates: start: 20041025
  2. RADIOTHERAPY [Suspect]
     Dosage: STARTING DAY ONE
  3. OXALIPLATIN [Suspect]
     Dosage: 60 MG/M2 IV OVER 2 HOURS DAYS 1,8,15,22,29. FOLLOWED BY SURGERY FOUR TO EIGHT WEEKS AFTER COMPLETING

REACTIONS (6)
  - CATHETER RELATED INFECTION [None]
  - PELVIC ABSCESS [None]
  - POST PROCEDURAL COMPLICATION [None]
  - RESPIRATORY FAILURE [None]
  - VOMITING [None]
  - WOUND DEHISCENCE [None]
